FAERS Safety Report 10204777 (Version 2)
Quarter: 2014Q3

REPORT INFORMATION
  Report Type: Spontaneous
  Country: IT (occurrence: IT)
  Receive Date: 20140529
  Receipt Date: 20140811
  Transmission Date: 20150326
  Serious: Yes (Life-Threatening, Hospitalization, Other)
  Sender: FDA-Public Use
  Company Number: IT-ELI_LILLY_AND_COMPANY-IT201405007746

PATIENT
  Age: 68 Year
  Sex: Male

DRUGS (15)
  1. METFORMIN [Suspect]
     Active Substance: METFORMIN HYDROCHLORIDE
     Indication: DIABETES MELLITUS
     Dosage: 500 MG, WEEKLY (1/W)
     Route: 048
     Dates: start: 20130117, end: 20131105
  2. PRITOR [Concomitant]
     Active Substance: TELMISARTAN
     Indication: HYPERTENSION
     Dosage: UNK
     Route: 048
     Dates: start: 20130117, end: 20131105
  3. RYTMONORM [Concomitant]
     Active Substance: PROPAFENONE
     Indication: TACHYARRHYTHMIA
     Dosage: UNK
     Dates: start: 20130117, end: 20131105
  4. ASPIRIN. [Concomitant]
     Active Substance: ASPIRIN
     Dosage: UNK
     Dates: start: 20130117, end: 20140520
  5. CARDICOR [Concomitant]
     Active Substance: BISOPROLOL
     Indication: CARDIAC FAILURE
     Dosage: UNK
     Route: 048
     Dates: start: 20130117, end: 20140520
  6. MINITRAN                           /00003201/ [Concomitant]
     Dosage: UNK
     Route: 062
     Dates: start: 20130117, end: 20131105
  7. HUMALOG [Suspect]
     Active Substance: INSULIN LISPRO
     Dosage: 4 DF, EACH MORNING
     Route: 058
     Dates: start: 20131105
  8. LANTUS [Suspect]
     Active Substance: INSULIN GLARGINE
     Dosage: 40 MG, QD
     Route: 058
     Dates: start: 20131105
  9. ESKIM [Concomitant]
     Active Substance: OMEGA-3 FATTY ACIDS
     Dosage: UNK
     Dates: start: 20130117, end: 20131105
  10. TRIATEC [Concomitant]
     Active Substance: RAMIPRIL
     Indication: HYPERTENSION
     Dosage: UNK
     Route: 048
     Dates: start: 20130117, end: 20131105
  11. NORVASC [Concomitant]
     Active Substance: AMLODIPINE BESYLATE
     Indication: HYPERTENSION
     Dosage: UNK
     Route: 048
     Dates: start: 20130117, end: 20131105
  12. HUMALOG [Suspect]
     Active Substance: INSULIN LISPRO
     Dosage: 8 DF, BID
     Route: 058
     Dates: start: 20131105
  13. SIVASTIN [Concomitant]
     Active Substance: SIMVASTATIN
     Dosage: UNK
     Route: 048
     Dates: start: 20130117, end: 20131105
  14. HUMALOG [Suspect]
     Active Substance: INSULIN LISPRO
     Indication: TYPE 1 DIABETES MELLITUS
     Dosage: 29 DF, QD
     Route: 058
     Dates: start: 20130117, end: 20131105
  15. LANTUS [Suspect]
     Active Substance: INSULIN GLARGINE
     Indication: TYPE 1 DIABETES MELLITUS
     Dosage: 46 DF, QD
     Route: 058
     Dates: start: 20130117, end: 20131105

REACTIONS (5)
  - Blood creatinine increased [Unknown]
  - Wrong technique in drug usage process [Unknown]
  - Glycosylated haemoglobin increased [Unknown]
  - Atrial fibrillation [Unknown]
  - Hypoglycaemia [Recovered/Resolved]

NARRATIVE: CASE EVENT DATE: 20130625
